FAERS Safety Report 26013593 (Version 1)
Quarter: 2025Q4

REPORT INFORMATION
  Report Type: Spontaneous
  Country: US (occurrence: US)
  Receive Date: 20251107
  Receipt Date: 20251107
  Transmission Date: 20260118
  Serious: No
  Sender: INSUD PHARMA
  Company Number: US-INSUD PHARMA-2510US08975

PATIENT

DRUGS (5)
  1. PROGESTERONE [Suspect]
     Active Substance: PROGESTERONE
     Indication: Hormone replacement therapy
     Dosage: 100 MG
     Route: 048
     Dates: start: 2025
  2. PROGESTERONE [Suspect]
     Active Substance: PROGESTERONE
     Dosage: DOUBLED HER DOSE
     Route: 048
     Dates: start: 202502, end: 2025
  3. PROGESTERONE [Suspect]
     Active Substance: PROGESTERONE
     Dosage: UNKNOWN
     Route: 048
     Dates: start: 2024
  4. ESTROGENS [Suspect]
     Active Substance: ESTROGENS
     Indication: Hormone replacement therapy
     Dosage: UNKNOWN
     Route: 065
     Dates: start: 2024
  5. ESTROGENS [Suspect]
     Active Substance: ESTROGENS
     Dosage: UNKNOWN
     Route: 065
     Dates: start: 2024, end: 2024

REACTIONS (2)
  - Alopecia [Not Recovered/Not Resolved]
  - Product use in unapproved indication [Unknown]

NARRATIVE: CASE EVENT DATE: 20240101
